FAERS Safety Report 7464186-7 (Version None)
Quarter: 2011Q2

REPORT INFORMATION
  Report Type: 
  Country: None (occurrence: None)
  Receive Date: 20110506
  Receipt Date: 20110427
  Transmission Date: 20111010
  Serious: Yes (Other)
  Sender: FDA-Public Use
  Company Number: US-ASTRAZENECA-2011SE25050

PATIENT
  Age: 53 Year
  Sex: Female

DRUGS (2)
  1. NEXIUM [Suspect]
     Route: 048
  2. PRILOSEC [Concomitant]

REACTIONS (4)
  - OESOPHAGITIS [None]
  - HIATUS HERNIA [None]
  - CEREBROVASCULAR ACCIDENT [None]
  - ULCER [None]
